FAERS Safety Report 24357169 (Version 1)
Quarter: 2024Q3

REPORT INFORMATION
  Report Type: Report from Study
  Country: CN (occurrence: CN)
  Receive Date: 20240924
  Receipt Date: 20240924
  Transmission Date: 20241017
  Serious: Yes (Death)
  Sender: ROCHE
  Company Number: CN-ROCHE-10000005949

PATIENT
  Age: 71 Year
  Sex: Male

DRUGS (1)
  1. COLUMVI [Suspect]
     Active Substance: GLOFITAMAB-GXBM
     Indication: Diffuse large B-cell lymphoma
     Route: 042
     Dates: start: 20240223

REACTIONS (7)
  - Anaemia [Recovering/Resolving]
  - Asthenia [Recovering/Resolving]
  - Neoplasm progression [Unknown]
  - Drug resistance [Unknown]
  - Feeding disorder [Unknown]
  - Eating disorder [Unknown]
  - Blood disorder [Fatal]
